FAERS Safety Report 16478317 (Version 1)
Quarter: 2019Q2

REPORT INFORMATION
  Report Type: Report from Study
  Country: JP (occurrence: JP)
  Receive Date: 20190626
  Receipt Date: 20190626
  Transmission Date: 20190711
  Serious: Yes (Other)
  Sender: FDA-Public Use
  Company Number: JP-TEVA-2019-JP-1066948

PATIENT
  Age: 7 Decade
  Sex: Female

DRUGS (3)
  1. IGURATIMOD [Suspect]
     Active Substance: IGURATIMOD
     Indication: RHEUMATOID ARTHRITIS
     Dosage: FOR THE FIRST 4 WEEKS
     Route: 048
  2. IGURATIMOD [Suspect]
     Active Substance: IGURATIMOD
     Dosage: FOR 11 WEEKS
     Route: 048
  3. WARFARIN POTASSIUM [Suspect]
     Active Substance: WARFARIN POTASSIUM
     Indication: DEEP VEIN THROMBOSIS
     Route: 065

REACTIONS (1)
  - Haemorrhage subcutaneous [Recovered/Resolved]
